FAERS Safety Report 8096421-9 (Version None)
Quarter: 2012Q1

REPORT INFORMATION
  Report Type: 
  Country: None (occurrence: None)
  Receive Date: 20120129
  Receipt Date: 20111213
  Transmission Date: 20120608
  Serious: No
  Sender: FDA-Public Use
  Company Number: US-ABBOTT-11P-163-0882914-00

PATIENT
  Sex: Female
  Weight: 91.708 kg

DRUGS (3)
  1. HUMIRA [Suspect]
     Indication: RHEUMATOID ARTHRITIS
     Dates: start: 20110922, end: 20111201
  2. VALTURNA [Concomitant]
     Indication: PRODUCT USED FOR UNKNOWN INDICATION
  3. HUMIRA [Suspect]
     Dates: start: 20111202

REACTIONS (6)
  - MUSCULOSKELETAL STIFFNESS [None]
  - HEAD TITUBATION [None]
  - PAIN [None]
  - ARTHRALGIA [None]
  - TREMOR [None]
  - FATIGUE [None]
